FAERS Safety Report 4818471-5 (Version None)
Quarter: 2005Q4

REPORT INFORMATION
  Report Type: 
  Country: None (occurrence: None)
  Receive Date: 20051101
  Receipt Date: 20051101
  Transmission Date: 20060501
  Serious: Yes (Other)
  Sender: FDA-Public Use
  Company Number: None

PATIENT
  Age: 53 Year
  Sex: Female
  Weight: 54.4316 kg

DRUGS (3)
  1. ENBREL [Suspect]
     Indication: ARTHRALGIA
     Dosage: 1  25 MG INJECTION    1/WEEK    SQ
     Route: 058
     Dates: start: 20001001, end: 20051015
  2. ENBREL [Suspect]
     Indication: RHEUMATOID ARTHRITIS
     Dosage: 1  25 MG INJECTION    1/WEEK    SQ
     Route: 058
     Dates: start: 20001001, end: 20051015
  3. NSAIDS [Concomitant]

REACTIONS (3)
  - IMPAIRED HEALING [None]
  - IMPLANT SITE REACTION [None]
  - WHITE BLOOD CELL COUNT DECREASED [None]
